FAERS Safety Report 4330363-7 (Version None)
Quarter: 2004Q1

REPORT INFORMATION
  Report Type: 
  Country: None (occurrence: None)
  Receive Date: 20040329
  Receipt Date: 20040319
  Transmission Date: 20041129
  Serious: Yes (Hospitalization, Disabling)
  Sender: FDA-Public Use
  Company Number: JP-JNJFOC-20040304252

PATIENT
  Age: 86 Year
  Sex: Male

DRUGS (14)
  1. OFLOXACIN              (OFLOXACIN) [Suspect]
     Indication: OSTEOMYELITIS
     Dosage: 200 MG, 1 IN 1 DAY, ORAL
     Route: 048
     Dates: start: 20031204, end: 20040223
  2. GLUCOPHAGE [Suspect]
     Indication: DIABETES MELLITUS
     Dosage: 1700 MG, ORAL
     Route: 048
     Dates: start: 20031118, end: 20040223
  3. PLACEBO (PLACEBO) [Suspect]
     Indication: ARTERIAL THROMBOSIS
     Dates: start: 20031215, end: 20040112
  4. VLFGF (ALL OTHER THERAPEUTIC PRODUCTS) [Suspect]
     Indication: ARTERIAL THROMBOSIS
     Dates: start: 20031215, end: 20040112
  5. MARCUMAR [Concomitant]
  6. ROHYPNOL (FLUNITRAZEPAM) [Concomitant]
  7. GLURENORM (GLIQUIDONE) [Concomitant]
  8. DALACIN  (CLINAMYCIN HYDROCHLORIDE) [Concomitant]
  9. STRUMAZOL  (THIAMAZOLE) [Concomitant]
  10. INDERAL [Concomitant]
  11. ..... [Concomitant]
  12. FRAXODI (NADROPARIN CALCIUM) [Concomitant]
  13. LORAMET (LORMETAZEPAM) [Concomitant]
  14. LASIX [Concomitant]

REACTIONS (10)
  - ANOREXIA [None]
  - DISEASE PROGRESSION [None]
  - GENERAL PHYSICAL HEALTH DETERIORATION [None]
  - IMPAIRED HEALING [None]
  - OEDEMA PERIPHERAL [None]
  - OSTEOMYELITIS [None]
  - SKIN ULCER [None]
  - STAPHYLOCOCCAL INFECTION [None]
  - TOE AMPUTATION [None]
  - WEIGHT DECREASED [None]
